FAERS Safety Report 23004171 (Version 3)
Quarter: 2023Q4

REPORT INFORMATION
  Report Type: Spontaneous
  Country: FR (occurrence: FR)
  Receive Date: 20230928
  Receipt Date: 20231020
  Transmission Date: 20240110
  Serious: Yes (Hospitalization, Other)
  Sender: FDA-Public Use
  Company Number: FR-ADVANZ PHARMA-202309008405

PATIENT

DRUGS (23)
  1. PILOCARPINE [Suspect]
     Active Substance: PILOCARPINE
     Indication: Product used for unknown indication
     Dosage: UNK
     Route: 065
  2. CLOMIPRAMINE HYDROCHLORIDE [Suspect]
     Active Substance: CLOMIPRAMINE HYDROCHLORIDE
     Indication: Mental disorder
     Dosage: 150 MG, QD (IN THE EVENING), LONG-TERM TREATMENT,)
     Route: 048
  3. CYAMEMAZINE [Suspect]
     Active Substance: CYAMEMAZINE
     Indication: Mental disorder
     Dosage: 100 MG, QD (BEDTIME, LONG-TERM TREATMENT)
     Route: 048
  4. QUETIAPINE FUMARATE [Suspect]
     Active Substance: QUETIAPINE FUMARATE
     Indication: Mental disorder
     Dosage: 100 MG, QD
     Route: 048
  5. QUETIAPINE FUMARATE [Suspect]
     Active Substance: QUETIAPINE FUMARATE
     Indication: Mental disorder
     Dosage: 100 MG, QD (LONG TERM) (PROLONGED/EXTENDED RELEASE)
     Route: 065
  6. ANETHOLTRITHION [Suspect]
     Active Substance: ANETHOLTRITHION
     Indication: Mental disorder
     Dosage: UNK
     Route: 065
  7. FESOTERODINE FUMARATE [Suspect]
     Active Substance: FESOTERODINE FUMARATE
     Indication: Mental disorder
     Dosage: UNK
     Route: 065
  8. SPAGULAX [Suspect]
     Active Substance: HERBALS\PLANTAGO OVATA SEED
     Indication: Mental disorder
     Dosage: UNK
     Route: 065
  9. CALCIUM LEVULINATE ANHYDROUS\CHOLECALCIFEROL\CYANOCOBALAMIN [Suspect]
     Active Substance: CALCIUM LEVULINATE ANHYDROUS\CHOLECALCIFEROL\CYANOCOBALAMIN
     Indication: Mental disorder
     Dosage: UNK
     Route: 065
  10. LACTULOSE [Suspect]
     Active Substance: LACTULOSE
     Indication: Product used for unknown indication
     Dosage: UNK
     Route: 065
  11. POTASSIUM BITARTRATE\SODIUM BICARBONATE [Suspect]
     Active Substance: POTASSIUM BITARTRATE\SODIUM BICARBONATE
     Indication: Mental disorder
     Dosage: UNK
     Route: 065
  12. TROSPIUM CHLORIDE [Suspect]
     Active Substance: TROSPIUM CHLORIDE
     Indication: Mental disorder
     Dosage: UNK
     Route: 065
  13. ENBREL [Suspect]
     Active Substance: ETANERCEPT
     Indication: Mental disorder
     Dosage: UNK
     Route: 065
  14. LEVOTHYROXINE SODIUM [Suspect]
     Active Substance: LEVOTHYROXINE SODIUM
     Indication: Product used for unknown indication
     Dosage: UNK
     Route: 065
  15. MORPHINE SULFATE [Suspect]
     Active Substance: MORPHINE SULFATE
     Indication: Pain
     Dosage: 2 DOSAGE FORM, BID
     Route: 048
     Dates: start: 2023, end: 2023
  16. MORPHINE SULFATE [Suspect]
     Active Substance: MORPHINE SULFATE
     Dosage: 3 DOSAGE FORM, BID (MORNING, NOON AND NIGHT)
     Route: 048
     Dates: start: 2023, end: 2023
  17. MORPHINE SULFATE [Suspect]
     Active Substance: MORPHINE SULFATE
     Indication: Pain
     Dosage: 3 DOSAGE FORM, QD (1 DOSE IN MORNING, NOON AND  EVENING)
     Route: 048
     Dates: start: 2023, end: 2023
  18. PANTOPRAZOLE [Suspect]
     Active Substance: PANTOPRAZOLE
     Indication: Gastric ulcer
     Dosage: 40 MG, QD (IN THE EVENING)
     Route: 048
     Dates: start: 2023, end: 2023
  19. PANTOPRAZOLE SODIUM [Suspect]
     Active Substance: PANTOPRAZOLE SODIUM
     Indication: Gastric ulcer
     Dosage: 40 MG, QD (IN THE EVENING) (WATER PURIFIED)
     Route: 048
     Dates: start: 2023, end: 2023
  20. MORPHINE SULFATE [Suspect]
     Active Substance: MORPHINE SULFATE
     Indication: Pain
     Dosage: 2 DOSAGE FORM, BID
     Route: 048
     Dates: start: 2023, end: 2023
  21. MORPHINE SULFATE [Suspect]
     Active Substance: MORPHINE SULFATE
     Dosage: 3 DOSAGE FORM, PRN (MORNING, NOON AND NIGHT IF PAIN)
     Route: 048
     Dates: start: 2023, end: 2023
  22. PREDNISONE [Suspect]
     Active Substance: PREDNISONE
     Indication: Product used for unknown indication
     Dosage: 1 DOSAGE FORM, QD (IN MORNING)
     Route: 048
     Dates: start: 202307
  23. CLOMIPRAMINE HYDROCHLORIDE [Suspect]
     Active Substance: CLOMIPRAMINE HYDROCHLORIDE
     Indication: Mental disorder
     Dosage: 150 MG, QD (IN THE EVENING, LONG-TERM TREATMENT)
     Route: 048

REACTIONS (2)
  - Psychiatric decompensation [Unknown]
  - Oedema peripheral [Not Recovered/Not Resolved]

NARRATIVE: CASE EVENT DATE: 20230701
